FAERS Safety Report 4676164-1 (Version None)
Quarter: 2005Q2

REPORT INFORMATION
  Report Type: 
  Country: None (occurrence: None)
  Receive Date: 20050527
  Receipt Date: 20050407
  Transmission Date: 20051028
  Serious: No
  Sender: FDA-Public Use
  Company Number: US-GLAXOSMITHKLINE-A0553198A

PATIENT
  Sex: Female

DRUGS (1)
  1. WELLBUTRIN XL [Suspect]
     Dosage: 150MG IN THE MORNING
     Route: 048

REACTIONS (2)
  - ABDOMINAL PAIN [None]
  - DIARRHOEA [None]
